FAERS Safety Report 12736328 (Version 2)
Quarter: 2016Q3

REPORT INFORMATION
  Report Type: Spontaneous
  Country: US (occurrence: US)
  Receive Date: 20160913
  Receipt Date: 20160923
  Transmission Date: 20161109
  Serious: No
  Sender: FDA-Public Use
  Company Number: US-BAYER-2016-177761

PATIENT
  Age: 67 Year
  Sex: Female
  Weight: 68.27 kg

DRUGS (7)
  1. METFORMIN [Concomitant]
     Active Substance: METFORMIN HYDROCHLORIDE
  2. BAYER LOW DOSE [Concomitant]
     Active Substance: ASPIRIN
  3. METOPROLOL. [Concomitant]
     Active Substance: METOPROLOL
  4. LISINOPRIL. [Concomitant]
     Active Substance: LISINOPRIL
  5. LETROZOLE. [Concomitant]
     Active Substance: LETROZOLE
  6. MIRALAX [Suspect]
     Active Substance: POLYETHYLENE GLYCOL 3350
     Indication: COLONOSCOPY
     Dosage: UNK
     Route: 048
  7. PRAVASTATIN. [Concomitant]
     Active Substance: PRAVASTATIN

REACTIONS (4)
  - Product use issue [None]
  - Off label use [None]
  - Off label use [None]
  - Wrong technique in product usage process [None]

NARRATIVE: CASE EVENT DATE: 20160914
